FAERS Safety Report 5169998-0 (Version None)
Quarter: 2006Q4

REPORT INFORMATION
  Report Type: 
  Country: None (occurrence: None)
  Receive Date: 20061212
  Receipt Date: 20061204
  Transmission Date: 20070319
  Serious: Yes (Hospitalization, Other)
  Sender: FDA-Public Use
  Company Number: JP-JPN-A200605192

PATIENT
  Age: 55 Year
  Sex: Male
  Weight: 69 kg

DRUGS (13)
  1. ALKERAN [Suspect]
     Indication: STEM CELL TRANSPLANT
     Dosage: 175MG PER DAY
     Route: 042
     Dates: start: 20051128, end: 20051129
  2. NEUTROGIN [Concomitant]
     Dates: start: 20051202, end: 20051212
  3. CIPROFLOXACIN [Concomitant]
     Route: 048
     Dates: start: 20051125
  4. FLUCONAZOLE [Concomitant]
     Route: 048
     Dates: start: 20051125
  5. ZOVIRAX [Concomitant]
     Route: 048
     Dates: start: 20051125, end: 20060109
  6. GASTER D [Concomitant]
     Route: 048
     Dates: start: 20050808
  7. FUNGUARD [Concomitant]
     Route: 042
     Dates: start: 20051205, end: 20051221
  8. MAXIPIME [Concomitant]
     Dates: start: 20051205, end: 20051207
  9. MEROPEN [Concomitant]
     Route: 042
     Dates: start: 20051207, end: 20051221
  10. FULCALIQ [Concomitant]
     Route: 042
     Dates: start: 20051205, end: 20051220
  11. FULCALIQ [Concomitant]
     Route: 042
     Dates: start: 20051221, end: 20051224
  12. MORPHINE [Concomitant]
     Dates: start: 20051205, end: 20051218
  13. JAPANESE MEDICATION [Concomitant]
     Dosage: 60MG PER DAY
     Route: 048
     Dates: start: 20050826

REACTIONS (3)
  - ABDOMINAL PAIN [None]
  - ALANINE AMINOTRANSFERASE INCREASED [None]
  - FEBRILE NEUTROPENIA [None]
